FAERS Safety Report 4290318-8 (Version None)
Quarter: 2004Q1

REPORT INFORMATION
  Report Type: 
  Country: None (occurrence: None)
  Receive Date: 20040209
  Receipt Date: 20040203
  Transmission Date: 20041129
  Serious: Yes (Death)
  Sender: FDA-Public Use
  Company Number: KII-1999-0001377

PATIENT
  Sex: Female

DRUGS (1)
  1. OXYFAST CONCENTRATE 20 MG/ML (OXYCODONE HYDROCHLORIDE) ORAL SOLUTION [Suspect]
     Indication: CANCER PAIN

REACTIONS (2)
  - CARCINOMA [None]
  - MALIGNANT NEOPLASM PROGRESSION [None]
